FAERS Safety Report 8772075 (Version 1)
Quarter: 2012Q4

REPORT INFORMATION
  Report Type: 
  Country: NZ (occurrence: NZ)
  Receive Date: 20120906
  Receipt Date: 20120906
  Transmission Date: 20130627
  Serious: Yes (Death, Hospitalization, Other)
  Sender: FDA-Public Use
  Company Number: NZ-B.I. PHARMACEUTICALS,INC./RIDGEFIELD-2012-EU-04256GD

PATIENT
  Sex: Female

DRUGS (1)
  1. DABIGATRAN ETEXILATE [Suspect]

REACTIONS (6)
  - Arrhythmia [Fatal]
  - Hypercalcaemia [Fatal]
  - Cardiogenic shock [Fatal]
  - Renal failure acute [Unknown]
  - Thrombin time prolonged [Unknown]
  - General physical health deterioration [Unknown]
